FAERS Safety Report 6204617-3 (Version None)
Quarter: 2009Q2

REPORT INFORMATION
  Report Type: 
  Country: None (occurrence: None)
  Receive Date: 20090527
  Receipt Date: 20090514
  Transmission Date: 20091009
  Serious: Yes (Other)
  Sender: FDA-Public Use
  Company Number: US-PFIZER INC-2009213782

PATIENT
  Sex: Female

DRUGS (11)
  1. PROVERA [Suspect]
     Indication: HORMONE REPLACEMENT THERAPY
     Dosage: 2.5 MG, UNK
     Route: 048
     Dates: start: 19941021, end: 19951128
  2. PREMARIN [Suspect]
     Indication: HORMONE REPLACEMENT THERAPY
     Dosage: 0.625 MG, UNK
     Route: 048
     Dates: start: 19941021, end: 19971104
  3. CYCRIN [Suspect]
     Indication: HORMONE REPLACEMENT THERAPY
     Dosage: UNK
     Dates: start: 19951128, end: 19971104
  4. PREMPRO [Suspect]
     Indication: HORMONE REPLACEMENT THERAPY
     Dosage: 0.625/2.5MG, UNK
     Dates: start: 19971104, end: 20010523
  5. AMBIEN [Concomitant]
     Indication: INSOMNIA
     Dosage: UNK
     Dates: start: 19980429
  6. AVANDIA [Concomitant]
     Indication: DIABETES MELLITUS
     Dosage: UNK
     Dates: start: 20000414
  7. FUROSEMIDE [Concomitant]
     Indication: POLYURIA
     Dosage: UNK
     Dates: start: 19910101
  8. FUROSEMIDE [Concomitant]
     Indication: SWELLING
  9. GEMFIBROZIL [Concomitant]
     Indication: BLOOD CHOLESTEROL DECREASED
     Dosage: UNK
     Dates: start: 19971220
  10. HUMULIN R [Concomitant]
     Indication: DIABETES MELLITUS
     Dosage: UNK
     Dates: start: 19910101, end: 20010609
  11. PRAVACHOL [Concomitant]
     Indication: BLOOD CHOLESTEROL DECREASED
     Dosage: UNK
     Dates: start: 19950101

REACTIONS (1)
  - PULMONARY EMBOLISM [None]
